FAERS Safety Report 10959009 (Version 1)
Quarter: 2015Q1

REPORT INFORMATION
  Report Type: Spontaneous
  Country: US (occurrence: US)
  Receive Date: 20150327
  Receipt Date: 20150327
  Transmission Date: 20150721
  Serious: Yes (Death)
  Sender: FDA-Public Use
  Company Number: US-CIPLA LTD.-2015US02298

PATIENT

DRUGS (7)
  1. NORTRIPTYLINE [Suspect]
     Active Substance: NORTRIPTYLINE
  2. OXYMORPHONE [Suspect]
     Active Substance: OXYMORPHONE
  3. ACETAMINOPHEN. [Suspect]
     Active Substance: ACETAMINOPHEN
  4. OXYCODONE [Suspect]
     Active Substance: OXYCODONE
  5. SERTRALINE [Suspect]
     Active Substance: SERTRALINE HYDROCHLORIDE
  6. ALPRAZOLAM. [Suspect]
     Active Substance: ALPRAZOLAM
  7. ETHANOL [Suspect]
     Active Substance: ALCOHOL

REACTIONS (1)
  - Completed suicide [Fatal]
